FAERS Safety Report 5139889-X (Version None)
Quarter: 2006Q4

REPORT INFORMATION
  Report Type: 
  Country: None (occurrence: None)
  Receive Date: 20061025
  Receipt Date: 20061025
  Transmission Date: 20070319
  Serious: Yes (Other)
  Sender: FDA-Public Use
  Company Number: None

PATIENT
  Age: 77 Year
  Sex: Male
  Weight: 73 kg

DRUGS (4)
  1. AGGRENOX [Suspect]
  2. OMEPRAZOLE [Concomitant]
  3. FLUNISOLIDE [Concomitant]
  4. SIMVASTATIN [Concomitant]

REACTIONS (1)
  - HEADACHE [None]
